FAERS Safety Report 6877604-X (Version None)
Quarter: 2010Q3

REPORT INFORMATION
  Report Type: 
  Country: None (occurrence: None)
  Receive Date: 20100727
  Receipt Date: 20100405
  Transmission Date: 20110219
  Serious: No
  Sender: FDA-Public Use
  Company Number: US-ABBOTT-10P-163-0637205-00

PATIENT
  Sex: Male
  Weight: 79.45 kg

DRUGS (5)
  1. SYNTHROID [Suspect]
     Indication: THYROIDECTOMY
     Route: 048
     Dates: start: 20000101, end: 20050101
  2. SYNTHROID [Suspect]
     Indication: THYROID CANCER
     Route: 048
     Dates: start: 20050101, end: 20070101
  3. SYNTHROID [Suspect]
     Dosage: STORED INA PLASTIC RUBBER MAID BOX IN A CABINET
     Route: 048
     Dates: start: 20070101
  4. ZOCOR [Concomitant]
     Indication: BLOOD CHOLESTEROL INCREASED
     Route: 048
  5. METFORMIN HCL [Concomitant]
     Indication: GLUCOSE TOLERANCE IMPAIRED
     Route: 048

REACTIONS (2)
  - ASTHENIA [None]
  - FATIGUE [None]
